FAERS Safety Report 6016857-7 (Version None)
Quarter: 2008Q4

REPORT INFORMATION
  Report Type: 
  Country: None (occurrence: None)
  Receive Date: 20081222
  Receipt Date: 20081216
  Transmission Date: 20090506
  Serious: Yes (Life-Threatening, Hospitalization)
  Sender: FDA-Public Use
  Company Number: FR-MERCK-0812FRA00071

PATIENT
  Age: 51 Year
  Sex: Male

DRUGS (9)
  1. COZAAR [Suspect]
     Indication: HYPERTENSION
     Route: 048
     Dates: start: 20081021, end: 20081025
  2. FUROSEMIDE [Concomitant]
     Indication: HYPERTENSION
     Route: 051
     Dates: end: 20081020
  3. MORPHINE SULFATE [Suspect]
     Route: 048
     Dates: start: 20081018, end: 20081018
  4. MORPHINE SULFATE [Suspect]
     Route: 048
     Dates: start: 20081019, end: 20081025
  5. CANDESARTAN CILEXETIL [Concomitant]
     Indication: HYPERTENSION
     Route: 048
     Dates: start: 20070101, end: 20081021
  6. CLORAZEPATE DIPOTASSIUM [Concomitant]
     Route: 048
     Dates: start: 20081023, end: 20081024
  7. COLCHICINE [Suspect]
     Indication: GOUT
     Route: 048
     Dates: start: 20081017, end: 20081020
  8. SPIRONOLACTONE [Suspect]
     Indication: HYPERTENSION
     Route: 048
     Dates: start: 20070101, end: 20081025
  9. BISOPROLOL FUMARATE [Concomitant]
     Indication: HYPERTENSION
     Route: 048

REACTIONS (3)
  - DRUG INTERACTION [None]
  - OVERDOSE [None]
  - RENAL FAILURE ACUTE [None]
